FAERS Safety Report 5771863-2 (Version None)
Quarter: 2008Q2

REPORT INFORMATION
  Report Type: 
  Country: None (occurrence: None)
  Receive Date: 20080613
  Receipt Date: 20080606
  Transmission Date: 20081010
  Serious: Yes (Hospitalization)
  Sender: FDA-Public Use
  Company Number: B0519519A

PATIENT
  Age: 76 Year
  Sex: Female

DRUGS (2)
  1. ARIXTRA [Suspect]
     Indication: HEPARIN-INDUCED THROMBOCYTOPENIA
     Dosage: 7.5MG PER DAY
     Route: 058
     Dates: start: 20080321, end: 20080416
  2. ANTICOAGULANT [Concomitant]

REACTIONS (6)
  - DEHYDRATION [None]
  - HAEMATOMA [None]
  - HEPARIN-INDUCED THROMBOCYTOPENIA [None]
  - RENAL FAILURE [None]
  - SUBDURAL HAEMATOMA [None]
  - VOMITING [None]
